FAERS Safety Report 14849750 (Version 1)
Quarter: 2018Q2

REPORT INFORMATION
  Report Type: Report from Study
  Country: FR (occurrence: FR)
  Receive Date: 20180504
  Receipt Date: 20180504
  Transmission Date: 20180711
  Serious: Yes (Death, Hospitalization, Other)
  Sender: FDA-Public Use
  Company Number: PHHY2018FR057106

PATIENT
  Age: 71 Year
  Sex: Female
  Weight: 82 kg

DRUGS (2)
  1. LETROZOLE. [Suspect]
     Active Substance: LETROZOLE
     Indication: PRODUCT USED FOR UNKNOWN INDICATION
     Dosage: UNK, CYCLIC
     Route: 048
     Dates: start: 20180221, end: 20180315
  2. PALBOCICLIB [Suspect]
     Active Substance: PALBOCICLIB
     Indication: PRODUCT USED FOR UNKNOWN INDICATION
     Dosage: 125 MG, CYCLIC, 2 OT, CYCLIC,  (2 CYCLES)
     Route: 048
     Dates: start: 20180221, end: 20180315

REACTIONS (12)
  - Metastases to lymph nodes [Unknown]
  - Uterine malposition [Unknown]
  - Adrenal adenoma [Unknown]
  - Metastases to lung [Fatal]
  - General physical health deterioration [Unknown]
  - Spinal osteoarthritis [Unknown]
  - Vasodilatation [Unknown]
  - Retroperitoneal neoplasm [Unknown]
  - Neoplasm [Unknown]
  - Bronchial obstruction [Fatal]
  - Pleural effusion [Unknown]
  - Retroperitoneal lymphadenopathy [Unknown]

NARRATIVE: CASE EVENT DATE: 20180315
